FAERS Safety Report 7777693-4 (Version None)
Quarter: 2011Q3

REPORT INFORMATION
  Report Type: 
  Country: None (occurrence: None)
  Receive Date: 20110926
  Receipt Date: 20110921
  Transmission Date: 20111222
  Serious: Yes (Other)
  Sender: FDA-Public Use
  Company Number: US-SANOFI-AVENTIS-2011SA061929

PATIENT
  Age: 59 Year
  Sex: Female
  Weight: 127.3 kg

DRUGS (15)
  1. ISORBID [Concomitant]
     Route: 048
  2. PHENOBARBITAL TAB [Concomitant]
  3. ALBUTEROL [Concomitant]
  4. PLAVIX [Suspect]
     Indication: STENT PLACEMENT
     Route: 048
     Dates: start: 20050101
  5. LASIX [Concomitant]
  6. FISH OIL [Concomitant]
  7. PROVENTIL [Concomitant]
  8. ZOCOR [Concomitant]
  9. LOPRESSOR [Concomitant]
  10. LOPID [Concomitant]
  11. LASIX [Concomitant]
  12. VITAMIN D [Concomitant]
  13. ASPIRIN [Concomitant]
  14. LISINOPRIL [Concomitant]
  15. COLACE [Concomitant]

REACTIONS (5)
  - CHRONIC OBSTRUCTIVE PULMONARY DISEASE [None]
  - DYSPNOEA [None]
  - SLEEP APNOEA SYNDROME [None]
  - CARDIAC DISORDER [None]
  - ARTHRITIS [None]
